FAERS Safety Report 8015721-1 (Version None)
Quarter: 2011Q4

REPORT INFORMATION
  Report Type: 
  Country: None (occurrence: None)
  Receive Date: 20111230
  Receipt Date: 20111226
  Transmission Date: 20120403
  Serious: Yes (Other)
  Sender: FDA-Public Use
  Company Number: PHHY2011FR112968

PATIENT
  Sex: Female

DRUGS (5)
  1. PAROXETINE [Concomitant]
     Dosage: UNK UKN, UNK
  2. ACETAMINOPHEN [Concomitant]
  3. ZOPICLONE [Concomitant]
     Dosage: UNK UKN, UNK
  4. ZOLEDRONOC ACID [Suspect]
     Indication: FEMUR FRACTURE
     Dosage: UNK UKN, UNK
     Route: 042
     Dates: start: 20111001
  5. OMEPRAZOLE [Concomitant]
     Dosage: UNK UKN, UNK

REACTIONS (3)
  - ARTHRALGIA [None]
  - OSTEONECROSIS OF JAW [None]
  - DRY EYE [None]
